FAERS Safety Report 17121560 (Version 1)
Quarter: 2019Q4

REPORT INFORMATION
  Report Type: Spontaneous
  Country: CN (occurrence: CN)
  Receive Date: 20191206
  Receipt Date: 20191206
  Transmission Date: 20200122
  Serious: Yes (Hospitalization, Other)
  Sender: FDA-Public Use
  Company Number: NVSC2019CN054508

PATIENT
  Age: 14 Year
  Sex: Female
  Weight: 39.5 kg

DRUGS (3)
  1. TOBRAMYCIN AND DEXAMETHASONE [Suspect]
     Active Substance: DEXAMETHASONE\TOBRAMYCIN
     Indication: BLEPHARITIS
     Dosage: 1 U, BID
     Route: 047
     Dates: start: 20190912, end: 20190915
  2. EMEDASTINE DIFUMARATE [Suspect]
     Active Substance: EMEDASTINE DIFUMARATE
     Indication: BLEPHARITIS
     Dosage: 1 DRP, BID
     Route: 047
     Dates: start: 20190912, end: 20190915
  3. LEVOFLOXACIN. [Suspect]
     Active Substance: LEVOFLOXACIN
     Indication: BLEPHARITIS
     Dosage: 1 DRP, QID
     Route: 047
     Dates: start: 20190912, end: 20190915

REACTIONS (2)
  - Pruritus [Recovering/Resolving]
  - Rash [Recovering/Resolving]

NARRATIVE: CASE EVENT DATE: 20190915
